FAERS Safety Report 6479372-2 (Version None)
Quarter: 2009Q4

REPORT INFORMATION
  Report Type: 
  Country: None (occurrence: None)
  Receive Date: 20091207
  Receipt Date: 20090819
  Transmission Date: 20100525
  Serious: No
  Sender: FDA-Public Use
  Company Number: US-AMGEN-KDL335202

PATIENT
  Sex: Female
  Weight: 66.3 kg

DRUGS (3)
  1. ENBREL [Suspect]
     Indication: RHEUMATOID ARTHRITIS
     Route: 058
     Dates: start: 20070223, end: 20090223
  2. DARVOCET-N 100 [Concomitant]
  3. GABAPENTIN [Concomitant]

REACTIONS (1)
  - HERPES ZOSTER [None]
